FAERS Safety Report 9624191 (Version 2)
Quarter: 2014Q3

REPORT INFORMATION
  Report Type: Spontaneous
  Country: CN (occurrence: CN)
  Receive Date: 20131015
  Receipt Date: 20140720
  Transmission Date: 20150326
  Serious: Yes (Other)
  Sender: FDA-Public Use
  Company Number: PHHY2013CN115015

PATIENT
  Age: 79 Year
  Sex: Female

DRUGS (2)
  1. ACLASTA [Suspect]
     Active Substance: ZOLEDRONIC ACID
     Indication: OSTEOPOROSIS
     Dosage: 5 MG PER 100 ML (ONCE A YEAR)
     Route: 042
     Dates: start: 20130920
  2. SODIUM CHLORIDE. [Concomitant]
     Active Substance: SODIUM CHLORIDE
     Dosage: 500, TEMPORARY
     Route: 042
     Dates: start: 20130920, end: 20130920

REACTIONS (1)
  - Bundle branch block left [Recovered/Resolved]

NARRATIVE: CASE EVENT DATE: 20130920
